FAERS Safety Report 22166061 (Version 1)
Quarter: 2023Q1

REPORT INFORMATION
  Report Type: Spontaneous
  Country: US (occurrence: None)
  Receive Date: 20230331
  Receipt Date: 20230331
  Transmission Date: 20230418
  Serious: No
  Sender: FDA-Public Use
  Company Number: None

PATIENT
  Age: 70 Year
  Sex: Female
  Weight: 65.25 kg

DRUGS (7)
  1. ESTRADIOL VAGINAL CREAM [Suspect]
     Active Substance: ESTRADIOL
     Indication: Atrophic vulvovaginitis
     Dosage: OTHER QUANTITY : 1.5 OUNCE(S);?FREQUENCY : AT BEDTIME;?
     Route: 067
     Dates: start: 20230321, end: 20230321
  2. AMBIEN [Concomitant]
     Active Substance: ZOLPIDEM TARTRATE
  3. HYOSCYAMINE [Concomitant]
     Active Substance: HYOSCYAMINE
  4. Imipramine 10 mg [Concomitant]
  5. VITAMINS [Concomitant]
     Active Substance: VITAMINS
  6. CALCIUM [Concomitant]
     Active Substance: CALCIUM
  7. VITAMIN D3 [Concomitant]
     Active Substance: CHOLECALCIFEROL

REACTIONS (3)
  - Vulvovaginal burning sensation [None]
  - Vulvovaginal burning sensation [None]
  - Product substitution issue [None]

NARRATIVE: CASE EVENT DATE: 20230321
